FAERS Safety Report 5834749-0 (Version None)
Quarter: 2008Q3

REPORT INFORMATION
  Report Type: 
  Country: None (occurrence: None)
  Receive Date: 20080801
  Receipt Date: 20080723
  Transmission Date: 20090109
  Serious: Yes (Other)
  Sender: FDA-Public Use
  Company Number: IPS_01193_2008

PATIENT
  Age: 72 Year
  Sex: Female

DRUGS (2)
  1. APO-GO (APO-GO AMPOULES 10 MG/ML  SOLUTION FOR INJECTION - APOMORPHINE [Suspect]
     Indication: DRUG USE FOR UNKNOWN INDICATION
     Dosage: 5 MG PER HOUR FOR 1 YEAR SUBCUTANEOUS
     Route: 058
     Dates: start: 20070615, end: 20080601
  2. MADOPAR /00349201/ [Concomitant]

REACTIONS (4)
  - COOMBS TEST POSITIVE [None]
  - HAEMATOCRIT DECREASED [None]
  - HAEMOLYSIS [None]
  - HAPTOGLOBIN INCREASED [None]
